FAERS Safety Report 9994673 (Version 1)
Quarter: 2014Q1

REPORT INFORMATION
  Report Type: Spontaneous
  Country: FR (occurrence: FR)
  Receive Date: 20140311
  Receipt Date: 20140311
  Transmission Date: 20141002
  Serious: Yes (Hospitalization)
  Sender: FDA-Public Use
  Company Number: FR-ROCHE-1360201

PATIENT
  Age: 87 Year
  Sex: Female

DRUGS (11)
  1. ROCEPHINE [Suspect]
     Indication: PRODUCT USED FOR UNKNOWN INDICATION
     Route: 042
  2. PLAVIX [Suspect]
     Indication: PRODUCT USED FOR UNKNOWN INDICATION
     Route: 048
     Dates: end: 20140204
  3. EFFEXOR [Suspect]
     Indication: PRODUCT USED FOR UNKNOWN INDICATION
     Route: 048
  4. PREVISCAN (FRANCE) [Suspect]
     Indication: PRODUCT USED FOR UNKNOWN INDICATION
     Route: 048
  5. ATACAND [Concomitant]
     Indication: HYPERTENSION
     Route: 048
  6. AMLOR [Concomitant]
     Indication: HYPERTENSION
     Route: 048
  7. STILNOX [Concomitant]
     Indication: HYPNOTHERAPY
     Route: 048
  8. LEVOTHYROX [Concomitant]
     Indication: HYPOTHYROIDISM
     Route: 048
  9. EUPANTOL [Concomitant]
     Route: 048
  10. ADANCOR [Concomitant]
     Route: 048
  11. BISOPROLOL [Concomitant]
     Route: 048

REACTIONS (2)
  - Haematoma [Recovering/Resolving]
  - Anaemia [Recovered/Resolved]
